FAERS Safety Report 6901879-1 (Version None)
Quarter: 2010Q3

REPORT INFORMATION
  Report Type: 
  Country: None (occurrence: None)
  Receive Date: 20100803
  Receipt Date: 20080314
  Transmission Date: 20110219
  Serious: No
  Sender: FDA-Public Use
  Company Number: US-PFIZER INC-2008024708

PATIENT
  Sex: Female
  Weight: 63.636 kg

DRUGS (9)
  1. LYRICA [Suspect]
     Indication: NEURALGIA
     Dates: start: 20060101
  2. SYNTHROID [Concomitant]
  3. TOPROL-XL [Concomitant]
  4. VALSARTAN [Concomitant]
  5. CELEBREX [Concomitant]
  6. ACETYLSALICYLIC ACID SRT [Concomitant]
  7. EVISTA [Concomitant]
  8. ASCORBIC ACID [Concomitant]
  9. VITAMIN D [Concomitant]

REACTIONS (6)
  - CONSTIPATION [None]
  - DRY MOUTH [None]
  - FEELING ABNORMAL [None]
  - PAIN IN EXTREMITY [None]
  - SOMNOLENCE [None]
  - WEIGHT INCREASED [None]
